FAERS Safety Report 8291110-X (Version None)
Quarter: 2012Q2

REPORT INFORMATION
  Report Type: 
  Country: None (occurrence: None)
  Receive Date: 20120413
  Receipt Date: 20120411
  Transmission Date: 20120825
  Serious: Yes (Hospitalization, Other)
  Sender: FDA-Public Use
  Company Number: ADR-2010-8967

PATIENT
  Age: 55 Year
  Sex: Female

DRUGS (1)
  1. LIORESAL [Suspect]
     Indication: MUSCLE SPASTICITY
     Dosage: 500 MCG, DAILY, INTRATH
     Route: 037

REACTIONS (5)
  - IMPLANT SITE INFECTION [None]
  - COMA [None]
  - MUSCLE SPASTICITY [None]
  - CONDITION AGGRAVATED [None]
  - DEVICE OCCLUSION [None]
